FAERS Safety Report 11539712 (Version 1)
Quarter: 2015Q3

REPORT INFORMATION
  Report Type: Spontaneous
  Country: US (occurrence: None)
  Receive Date: 20150922
  Receipt Date: 20150922
  Transmission Date: 20151125
  Serious: Yes (Hospitalization)
  Sender: FDA-Public Use
  Company Number: None

PATIENT
  Sex: Female
  Weight: 107.96 kg

DRUGS (8)
  1. DEPAKOTE [Suspect]
     Active Substance: DIVALPROEX SODIUM
     Indication: BIPOLAR DISORDER
     Dosage: 0.55  1 DROP 3X.DAY  IN EYE
     Route: 048
     Dates: start: 2007, end: 2008
  2. VITAMIN C [Concomitant]
     Active Substance: ASCORBIC ACID
  3. ADV AIR DISKUS [Concomitant]
  4. RISPERDAL [Suspect]
     Active Substance: RISPERIDONE
  5. PROVENTAL INHALER [Concomitant]
  6. VITAMIN D [Concomitant]
     Active Substance: CHOLECALCIFEROL
  7. PROPRANANOL [Suspect]
     Active Substance: PROPRANOLOL HYDROCHLORIDE
  8. MELOXICAN [Concomitant]
     Active Substance: MELOXICAM

REACTIONS (4)
  - Asthenia [None]
  - Jaw disorder [None]
  - Tremor [None]
  - Parkinsonism [None]

NARRATIVE: CASE EVENT DATE: 2008
